FAERS Safety Report 6316559-3 (Version None)
Quarter: 2009Q3

REPORT INFORMATION
  Report Type: 
  Country: None (occurrence: None)
  Receive Date: 20090820
  Receipt Date: 20090811
  Transmission Date: 20100115
  Serious: Yes (Hospitalization)
  Sender: FDA-Public Use
  Company Number: JP-ASTRAZENECA-2009SE06393

PATIENT
  Age: 76 Year
  Sex: Male
  Weight: 62 kg

DRUGS (6)
  1. IRESSA [Suspect]
     Indication: LUNG NEOPLASM MALIGNANT
     Route: 048
     Dates: start: 20090226, end: 20090511
  2. DIOVAN [Concomitant]
     Indication: HYPERTENSION
     Route: 048
     Dates: start: 20080704
  3. CINALONG [Concomitant]
     Indication: HYPERTENSION
     Route: 048
     Dates: start: 20080704
  4. ZYLORIC [Concomitant]
     Indication: HYPERURICAEMIA
     Route: 048
     Dates: start: 20080704
  5. GASTER [Concomitant]
     Indication: GASTRITIS
     Route: 048
     Dates: start: 20080704
  6. ALESION [Concomitant]
     Indication: DRUG ERUPTION
     Route: 048
     Dates: start: 20090312

REACTIONS (1)
  - CYSTITIS HAEMORRHAGIC [None]
